FAERS Safety Report 8855010 (Version 2)
Quarter: 2012Q4

REPORT INFORMATION
  Report Type: 
  Country: US (occurrence: US)
  Receive Date: 20121023
  Receipt Date: 20121029
  Transmission Date: 20130627
  Serious: Yes (Other)
  Sender: FDA-Public Use
  Company Number: US-PFIZER INC-2012262128

PATIENT
  Sex: Male

DRUGS (2)
  1. AMIODARONE HCL [Suspect]
     Indication: ATRIAL FIBRILLATION
     Dosage: UNK
  2. ATENOLOL [Suspect]
     Indication: ATRIAL FIBRILLATION
     Dosage: UNK
     Dates: end: 20121017

REACTIONS (1)
  - Heart rate decreased [Unknown]
